FAERS Safety Report 24109947 (Version 1)
Quarter: 2024Q3

REPORT INFORMATION
  Report Type: Spontaneous
  Country: HR (occurrence: HR)
  Receive Date: 20240718
  Receipt Date: 20240718
  Transmission Date: 20241017
  Serious: Yes (Other)
  Sender: FRESENIUS KABI
  Company Number: HR-Basilea Pharmaceutica Deutschland GmbH-HR-BAS-21-00677

PATIENT
  Age: 63 Year
  Sex: Male

DRUGS (11)
  1. VANCOMYCIN [Suspect]
     Active Substance: VANCOMYCIN
     Indication: Central nervous system infection
     Dosage: VANCOMYCIN HCL?UNK UNK, UNKNOWN FREQ.?FROM OF ADMIN: CONCENTRATE FOR SOLUTION FOR INFUSION?ROUTE OF
  2. VANCOMYCIN [Suspect]
     Active Substance: VANCOMYCIN
     Dosage: UNK?ROUTE OF ADMIN: UNKNOWN
  3. MEROPENEM [Suspect]
     Active Substance: MEROPENEM
     Indication: Central nervous system infection
     Dosage: UNK UNK, UNKNOWN FREQ.?FORM: CONCENTRATE FOR SOLUTION FOR INFUSION
  4. MEROPENEM [Suspect]
     Active Substance: MEROPENEM
     Dosage: UNK UNK, UNKNOWN FREQ.?FORM: CONCENTRATE FOR SOLUTION FOR INFUSION
  5. MEROPENEM [Suspect]
     Active Substance: MEROPENEM
     Dosage: UNK
  6. ISAVUCONAZOLE [Suspect]
     Active Substance: ISAVUCONAZOLE
     Indication: Fungal infection
     Dosage: 200 MG, QD?CAPSULE ?INTRAVENOUS
  7. ISAVUCONAZOLE [Suspect]
     Active Substance: ISAVUCONAZOLE
     Dosage: 200 MG, TID?INTRAVENOUS USE?CAPSULE
  8. AMPHOTERICIN B [Suspect]
     Active Substance: AMPHOTERICIN B
     Indication: Central nervous system infection
     Dosage: UNK?INJECTION
  9. AMPHOTERICIN B [Suspect]
     Active Substance: AMPHOTERICIN B
     Dosage: UNK
  10. ISAVUCONAZONIUM SULFATE [Suspect]
     Active Substance: ISAVUCONAZONIUM SULFATE
     Indication: Fungal infection
     Dosage: 200 MG, 3X/DAY?CONCENTRATE FOR SOLUTION FOR INFUSION ?INTRAVENOUS
  11. ISAVUCONAZONIUM SULFATE [Suspect]
     Active Substance: ISAVUCONAZONIUM SULFATE
     Dosage: 200 MG, 1X/DAY?CONCENTRATE FOR SOLUTION FOR INFUSION ?INTRAVENOUS

REACTIONS (8)
  - Central nervous system lesion [Unknown]
  - Central nervous system lesion [Unknown]
  - Off label use [Unknown]
  - Somnolence [Unknown]
  - Ataxia [Unknown]
  - Dysphagia [Unknown]
  - Pyrexia [Unknown]
  - Vertigo [Unknown]
